FAERS Safety Report 9714542 (Version 2)
Quarter: 2013Q4

REPORT INFORMATION
  Report Type: Spontaneous
  Country: US (occurrence: US)
  Receive Date: 20131126
  Receipt Date: 20131126
  Transmission Date: 20140711
  Serious: No
  Sender: FDA-Public Use
  Company Number: US-GILEAD-2013-0086406

PATIENT
  Sex: Female

DRUGS (2)
  1. LETAIRIS [Suspect]
     Indication: PRODUCT USED FOR UNKNOWN INDICATION
     Dosage: 10 MG, QD
     Dates: start: 20110822
  2. TYVASO [Concomitant]

REACTIONS (3)
  - Pruritus [Not Recovered/Not Resolved]
  - Oropharyngeal pain [Recovering/Resolving]
  - Cough [Not Recovered/Not Resolved]
